FAERS Safety Report 20635261 (Version 1)
Quarter: 2022Q1

REPORT INFORMATION
  Report Type: Report from Study
  Country: US (occurrence: US)
  Receive Date: 20220325
  Receipt Date: 20220325
  Transmission Date: 20220423
  Serious: Yes (Hospitalization)
  Sender: FDA-Public Use
  Company Number: US-MEIPHARMA-202009MEI00051

PATIENT

DRUGS (12)
  1. ZANUBRUTINIB [Suspect]
     Active Substance: ZANUBRUTINIB
     Indication: Chronic lymphocytic leukaemia
     Dosage: 80 MILLIGRAM, 2X / DAY
     Route: 048
     Dates: start: 20200923
  2. ZANUBRUTINIB [Suspect]
     Active Substance: ZANUBRUTINIB
     Dosage: 80 MILLIGRAM, 2X / DAY
     Route: 048
     Dates: start: 20200927
  3. ZANDELISIB [Suspect]
     Active Substance: ZANDELISIB
     Indication: Chronic lymphocytic leukaemia stage 2
     Dosage: 60 MILLIGRAM, 1X / DAY
     Route: 048
     Dates: start: 20200923
  4. ZANDELISIB [Suspect]
     Active Substance: ZANDELISIB
     Dosage: 60 MILLIGRAM, 1X / DAY
     Route: 048
     Dates: start: 20200927
  5. HYDROCHLOROTHIAZIDE [Concomitant]
     Active Substance: HYDROCHLOROTHIAZIDE
     Indication: Hypertension
     Dosage: 25 MILLIGRAM, 1X / DAY
     Route: 048
     Dates: start: 20160507
  6. ATENOLOL [Concomitant]
     Active Substance: ATENOLOL
     Indication: Hypertension
     Dosage: 25 MILLIGRAM, 1X / DAY
     Route: 048
     Dates: start: 20160507
  7. ASPIRIN [Concomitant]
     Active Substance: ASPIRIN
     Indication: Cardiovascular event prophylaxis
     Dosage: 81 MILLIGRAM, 1X / DAY
     Route: 048
     Dates: start: 20160507
  8. LIVALO [Concomitant]
     Active Substance: PITAVASTATIN CALCIUM
     Indication: Hyperlipidaemia
     Dosage: 2 MILLIGRAM, 1X / DAY
     Route: 048
     Dates: start: 20200810
  9. FLONASE ALLERGY RELIEF [Concomitant]
     Active Substance: FLUTICASONE PROPIONATE
     Indication: Rhinitis allergic
     Dosage: 50 MICROGRAM, 1X / DAY AS NEEDED
     Route: 045
     Dates: start: 202009
  10. XANAX [Concomitant]
     Active Substance: ALPRAZOLAM
     Indication: Anxiety
     Dosage: 0.25 MICROGRAM, QD (AT BEDTIME), PRN
     Route: 048
     Dates: start: 20200924
  11. ENTECAVIR [Concomitant]
     Active Substance: ENTECAVIR
     Indication: Antiviral prophylaxis
     Dosage: 0.5 MILLIGRAM, 1X / DAY
     Route: 048
     Dates: start: 20200917
  12. BACTRIM DS [Concomitant]
     Active Substance: SULFAMETHOXAZOLE\TRIMETHOPRIM
     Indication: Pneumocystis jirovecii pneumonia
     Dosage: 800-160 MG, MONDAY, WEDNESDAY, FRIDAY
     Route: 048
     Dates: start: 20200917

REACTIONS (1)
  - Tumour lysis syndrome [Recovered/Resolved]

NARRATIVE: CASE EVENT DATE: 20200924
